FAERS Safety Report 20725874 (Version 2)
Quarter: 2022Q2

REPORT INFORMATION
  Report Type: Spontaneous
  Country: US (occurrence: US)
  Receive Date: 20220419
  Receipt Date: 20220424
  Transmission Date: 20220720
  Serious: No
  Sender: FDA-Public Use
  Company Number: US-SA-SAC20220418000861

PATIENT
  Age: 24 Year
  Sex: Male

DRUGS (1)
  1. DUPIXENT [Suspect]
     Active Substance: DUPILUMAB
     Indication: Dermatitis atopic
     Dosage: 300 MG (1 PEN), QOW
     Route: 058
     Dates: start: 20220114

REACTIONS (2)
  - Eye irritation [Recovered/Resolved]
  - Impaired quality of life [Recovered/Resolved]

NARRATIVE: CASE EVENT DATE: 20220101
